FAERS Safety Report 6694172-6 (Version None)
Quarter: 2010Q2

REPORT INFORMATION
  Report Type: 
  Country: None (occurrence: None)
  Receive Date: 20100421
  Receipt Date: 20100412
  Transmission Date: 20101027
  Serious: No
  Sender: FDA-Public Use
  Company Number: B0648478A

PATIENT
  Age: 59 Year
  Sex: Male

DRUGS (8)
  1. PROPRANOLOL HYDROCHLORIDE [Suspect]
     Indication: DRUG USE FOR UNKNOWN INDICATION
  2. LISINOPRIL [Concomitant]
  3. FRUSEMIDE [Suspect]
  4. SPIRONOLACTONE [Concomitant]
  5. INSULIN [Concomitant]
  6. GABAPENTIN [Concomitant]
  7. LACTULOSE [Concomitant]
  8. SERTRALINE [Concomitant]

REACTIONS (8)
  - ABDOMINAL ADHESIONS [None]
  - BLOOD ALKALINE PHOSPHATASE INCREASED [None]
  - BLOOD BILIRUBIN INCREASED [None]
  - BLOOD GLUCOSE INCREASED [None]
  - HAEMOGLOBIN DECREASED [None]
  - PERITONEAL FIBROSIS [None]
  - SCLEROSING ENCAPSULATING PERITONITIS [None]
  - SMALL INTESTINAL OBSTRUCTION [None]
